FAERS Safety Report 8563200-5 (Version None)
Quarter: 2012Q3

REPORT INFORMATION
  Report Type: 
  Country: None (occurrence: None)
  Receive Date: 20120802
  Receipt Date: 20120726
  Transmission Date: 20120928
  Serious: No
  Sender: FDA-Public Use
  Company Number: US-AMGEN-USASP2012046837

PATIENT
  Age: 60 Year
  Sex: Female

DRUGS (2)
  1. ARAVA [Concomitant]
     Dosage: UNK
  2. ENBREL [Suspect]
     Indication: RHEUMATOID ARTHRITIS
     Dosage: 50 MG, QWK
     Dates: start: 20000214

REACTIONS (6)
  - JOINT DISLOCATION [None]
  - HAEMOGLOBIN DECREASED [None]
  - ABDOMINAL PAIN UPPER [None]
  - PAIN IN EXTREMITY [None]
  - FATIGUE [None]
  - FALL [None]
